FAERS Safety Report 5917026-9 (Version None)
Quarter: 2008Q4

REPORT INFORMATION
  Report Type: 
  Country: None (occurrence: None)
  Receive Date: 20081009
  Receipt Date: 20081009
  Transmission Date: 20090506
  Serious: Yes (Hospitalization)
  Sender: FDA-Public Use
  Company Number: None

PATIENT
  Sex: Male
  Weight: 101.2 kg

DRUGS (2)
  1. XELODA [Suspect]
     Dosage: 31500 MG
  2. ELOXATIN [Suspect]
     Dosage: 436 MG

REACTIONS (3)
  - DEHYDRATION [None]
  - HYPOXIA [None]
  - PNEUMONIA [None]
